FAERS Safety Report 10069576 (Version 2)
Quarter: 2014Q2

REPORT INFORMATION
  Report Type: Spontaneous
  Country: AT (occurrence: AT)
  Receive Date: 20140410
  Receipt Date: 20140411
  Transmission Date: 20141212
  Serious: Yes (Hospitalization, Other)
  Sender: FDA-Public Use
  Company Number: AT-AMGEN GMBH-AUTSP2014024252

PATIENT
  Sex: Male

DRUGS (7)
  1. XGEVA [Suspect]
     Indication: METASTASES TO BONE
     Dosage: 120 MG, Q4WK
     Route: 065
     Dates: start: 201208
  2. XGEVA [Suspect]
     Indication: NEOPLASM PROSTATE
  3. PREDNISOLON                        /00016201/ [Suspect]
     Indication: PRODUCT USED FOR UNKNOWN INDICATION
     Route: 065
  4. ZYTIGA [Concomitant]
  5. SINAREST                           /00116302/ [Concomitant]
  6. CITALOPRAM [Concomitant]
  7. SYNDOL                             /00256202/ [Concomitant]

REACTIONS (2)
  - Disease progression [Unknown]
  - Osteonecrosis of jaw [Not Recovered/Not Resolved]
